FAERS Safety Report 9479318 (Version 1)
Quarter: 2013Q3

REPORT INFORMATION
  Report Type: Spontaneous
  Country: ES (occurrence: ES)
  Receive Date: 20130827
  Receipt Date: 20130827
  Transmission Date: 20140515
  Serious: Yes (Hospitalization)
  Sender: FDA-Public Use
  Company Number: ES-MYLANLABS-2013S1018407

PATIENT
  Age: 68 Year
  Sex: Male

DRUGS (12)
  1. AMIODARONE [Suspect]
     Indication: ATRIAL FIBRILLATION
     Dosage: 200MG/DAY
     Route: 065
  2. THIAMAZOLE [Suspect]
     Indication: HYPERTHYROIDISM
     Route: 065
  3. PREDNISONE [Concomitant]
     Indication: HYPERTHYROIDISM
     Dosage: 20MG/DAILY
     Route: 065
  4. BISOPROLOL [Concomitant]
     Dosage: 5MG
     Route: 065
  5. OLMESARTAN MEDOXOMIL [Concomitant]
     Dosage: 20MG
     Route: 065
  6. FLUVASTATIN [Concomitant]
     Dosage: 80MG
     Route: 065
  7. EZETIMIBE [Concomitant]
     Dosage: 10MG
     Route: 065
  8. ASPIRIN [Concomitant]
     Dosage: 100MG
     Route: 065
  9. NITROGLYCERIN [Concomitant]
     Dosage: 5MG
     Route: 065
  10. ACENOCOUMAROL [Concomitant]
     Dosage: 1MG
     Route: 065
  11. OMEPRAZOLE [Concomitant]
     Dosage: 20MG
     Route: 065
  12. ESCITALOPRAM [Concomitant]
     Dosage: 15MG
     Route: 065

REACTIONS (2)
  - Hyperthyroidism [Recovered/Resolved]
  - Hepatitis cholestatic [Recovered/Resolved]
